FAERS Safety Report 4777815-3 (Version None)
Quarter: 2005Q3

REPORT INFORMATION
  Report Type: 
  Country: None (occurrence: None)
  Receive Date: 20050925
  Receipt Date: 20050914
  Transmission Date: 20060218
  Serious: Yes (Death)
  Sender: FDA-Public Use
  Company Number: US-JNJFOC-20031205261

PATIENT
  Sex: Female

DRUGS (22)
  1. INFLIXIMAB [Suspect]
     Indication: RHEUMATOID ARTHRITIS
     Dates: start: 20010626, end: 20011101
  2. FOSAMAX [Concomitant]
  3. PREDNISONE [Concomitant]
  4. FOLIC ACID [Concomitant]
  5. MONOPRIL [Concomitant]
  6. COREG [Concomitant]
  7. VERAPAMIL [Concomitant]
  8. DIOVAN [Concomitant]
  9. FUROSEMIDE [Concomitant]
  10. XANAX [Concomitant]
  11. ZYRTEC [Concomitant]
  12. NORVASC [Concomitant]
  13. AXID [Concomitant]
  14. CALCIUM GLUCONATE [Concomitant]
  15. MULTI-VITAMIN [Concomitant]
  16. MULTI-VITAMIN [Concomitant]
  17. MULTI-VITAMIN [Concomitant]
  18. MULTI-VITAMIN [Concomitant]
  19. MULTI-VITAMIN [Concomitant]
  20. MULTI-VITAMIN [Concomitant]
  21. MULTI-VITAMIN [Concomitant]
  22. MULTI-VITAMIN [Concomitant]

REACTIONS (4)
  - GASTROINTESTINAL DISORDER [None]
  - RESPIRATION ABNORMAL [None]
  - RESPIRATORY DISORDER [None]
  - SEPSIS [None]
